FAERS Safety Report 18723264 (Version 1)
Quarter: 2021Q1

REPORT INFORMATION
  Report Type: Spontaneous
  Country: US (occurrence: US)
  Receive Date: 20210109
  Receipt Date: 20210109
  Transmission Date: 20210419
  Serious: Yes (Life-Threatening, Hospitalization)
  Sender: FDA-Public Use
  Company Number: None

PATIENT
  Age: 73 Year
  Sex: Male
  Weight: 117 kg

DRUGS (2)
  1. IMDEVIMAB. [Suspect]
     Active Substance: IMDEVIMAB
     Indication: COVID-19
     Dosage: ?          OTHER FREQUENCY:ONCE;?
     Route: 042
     Dates: start: 20210108, end: 20210108
  2. CASIRIVIMAB. [Suspect]
     Active Substance: CASIRIVIMAB
     Indication: COVID-19
     Dosage: ?          OTHER FREQUENCY:ONCE;?
     Route: 042
     Dates: start: 20210108, end: 20210108

REACTIONS (9)
  - Infusion related reaction [None]
  - Blood creatine phosphokinase MB increased [None]
  - Electrocardiogram ST-T segment abnormal [None]
  - Troponin increased [None]
  - Chills [None]
  - Blood creatine phosphokinase increased [None]
  - Hyperhidrosis [None]
  - Chest pain [None]
  - Dyspnoea [None]

NARRATIVE: CASE EVENT DATE: 20210108
